FAERS Safety Report 5270509-X (Version None)
Quarter: 2007Q1

REPORT INFORMATION
  Report Type: 
  Country: None (occurrence: None)
  Receive Date: 20070315
  Receipt Date: 20070301
  Transmission Date: 20070707
  Serious: Yes (Hospitalization)
  Sender: FDA-Public Use
  Company Number: 2007PV030875

PATIENT
  Age: 51 Year
  Sex: Male

DRUGS (6)
  1. BYETTA [Suspect]
     Indication: DIABETES MELLITUS NON-INSULIN-DEPENDENT
     Dosage: SEE IMAGE
     Route: 058
     Dates: start: 20051101, end: 20060101
  2. BYETTA [Suspect]
     Indication: DIABETES MELLITUS NON-INSULIN-DEPENDENT
     Dosage: SEE IMAGE
     Route: 058
     Dates: start: 20060101, end: 20060201
  3. LASIX [Concomitant]
  4. NEURONTIN [Concomitant]
  5. HUMULIN 70/30 [Concomitant]
  6. ANTIREJECTION MEDICATION [Concomitant]

REACTIONS (4)
  - BENIGN NEOPLASM OF BLADDER [None]
  - BLADDER PAIN [None]
  - POLLAKIURIA [None]
  - URINARY BLADDER HAEMORRHAGE [None]
